FAERS Safety Report 7403096-8 (Version None)
Quarter: 2011Q2

REPORT INFORMATION
  Report Type: 
  Country: None (occurrence: None)
  Receive Date: 20110408
  Receipt Date: 20110404
  Transmission Date: 20111010
  Serious: Yes (Other)
  Sender: FDA-Public Use
  Company Number: US-SANOFI-AVENTIS-2011SA014888

PATIENT
  Age: 62 Year
  Sex: Female

DRUGS (4)
  1. LANTUS [Suspect]
     Indication: TYPE 2 DIABETES MELLITUS
     Dosage: DOSE:15 UNIT(S)
     Route: 058
     Dates: start: 20080101
  2. VICODIN [Concomitant]
  3. SOLOSTAR [Suspect]
     Dates: start: 20080101
  4. GLUCOPHAGE [Concomitant]

REACTIONS (8)
  - CONCUSSION [None]
  - SINUS DISORDER [None]
  - LOSS OF CONSCIOUSNESS [None]
  - BLOOD GLUCOSE INCREASED [None]
  - THROAT IRRITATION [None]
  - PRODUCT QUALITY ISSUE [None]
  - POOR QUALITY SLEEP [None]
  - RADICULITIS BRACHIAL [None]
